FAERS Safety Report 19470704 (Version 2)
Quarter: 2021Q3

REPORT INFORMATION
  Report Type: Spontaneous
  Country: US (occurrence: US)
  Receive Date: 20210628
  Receipt Date: 20210723
  Transmission Date: 20211014
  Serious: Yes (Other)
  Sender: FDA-Public Use
  Company Number: US-BAYER-2021-164387

PATIENT
  Age: 42 Year
  Sex: Female
  Weight: 64.22 kg

DRUGS (4)
  1. MIRENA [Suspect]
     Active Substance: LEVONORGESTREL
     Indication: CONTRACEPTION
     Dosage: 20  ?G PER DAY CONTINUOUSLY
     Route: 015
     Dates: start: 20180906, end: 20210708
  2. GABAPENTIN. [Concomitant]
     Active Substance: GABAPENTIN
     Dosage: 300 MG, QD
     Route: 048
  3. VALACYCLOVIR HCL [Concomitant]
     Active Substance: VALACYCLOVIR HYDROCHLORIDE
     Dosage: 500 MG, BID
     Route: 048
  4. MIRENA [Suspect]
     Active Substance: LEVONORGESTREL
     Indication: HEAVY MENSTRUAL BLEEDING

REACTIONS (12)
  - Heavy menstrual bleeding [None]
  - Glycosylated haemoglobin increased [None]
  - Neuropathy peripheral [None]
  - Vitamin B12 deficiency [None]
  - Upper respiratory tract infection [None]
  - Low density lipoprotein increased [None]
  - Genital herpes [None]
  - Complication of device removal [Recovered/Resolved]
  - Mammogram abnormal [None]
  - Sinusitis [None]
  - Genital haemorrhage [None]
  - Device dislocation [Recovered/Resolved]

NARRATIVE: CASE EVENT DATE: 202106
